FAERS Safety Report 4976065-5 (Version None)
Quarter: 2006Q2

REPORT INFORMATION
  Report Type: 
  Country: None (occurrence: None)
  Receive Date: 20060413
  Receipt Date: 20060322
  Transmission Date: 20061013
  Serious: Yes (Hospitalization)
  Sender: FDA-Public Use
  Company Number: 223714

PATIENT
  Age: 63 Year
  Sex: Male
  Weight: 60 kg

DRUGS (6)
  1. AVASTIN [Suspect]
     Indication: COLON CANCER
     Dosage: 330 MG, Q2W, INTRAVENOUS; SEE IMAGE
     Route: 042
     Dates: start: 20050330
  2. OXALIPLATIN (OXALIPLATIN) [Suspect]
     Indication: COLON CANCER
     Dosage: 150 MG, Q2W, INTRAVENOUS; SEE IMAGE
     Route: 042
     Dates: start: 20050330
  3. FLUOROURACIL [Suspect]
     Indication: COLON CANCER
     Dosage: 700 MG, INTRAVENOUS; SEE IMAGE
     Route: 042
     Dates: start: 20050330
  4. LEUCOVORIN CALCIUM [Suspect]
     Indication: COLON CANCER
     Dosage: 350 MG, INTRAVENOUS; SEE IMAGE
     Route: 042
     Dates: start: 20050330
  5. LANSOPRAZOLE [Concomitant]
  6. DOXAZOSIN MESYLATE [Concomitant]

REACTIONS (6)
  - ASTHENIA [None]
  - BLOOD CALCIUM ABNORMAL [None]
  - DEHYDRATION [None]
  - GENERAL PHYSICAL HEALTH DETERIORATION [None]
  - VOMITING [None]
  - WEIGHT DECREASED [None]
